FAERS Safety Report 8902700 (Version 4)
Quarter: 2013Q4

REPORT INFORMATION
  Report Type: Spontaneous
  Country: US (occurrence: US)
  Receive Date: 20121112
  Receipt Date: 20131022
  Transmission Date: 20140711
  Serious: Yes (Hospitalization, Other)
  Sender: FDA-Public Use
  Company Number: US-009507513-1211USA004413

PATIENT
  Sex: Female
  Weight: 65.76 kg

DRUGS (3)
  1. FOSAMAX [Suspect]
     Indication: OSTEOPOROSIS
     Dosage: 10 MG, QD
     Route: 048
     Dates: end: 200110
  2. FOSAMAX [Suspect]
     Dosage: 70 MG, QW
     Route: 048
     Dates: start: 200110, end: 200803
  3. ALENDRONATE SODIUM [Suspect]
     Indication: OSTEOPOROSIS
     Dosage: 70 MG, QW
     Route: 048
     Dates: start: 200803, end: 20110110

REACTIONS (52)
  - Femur fracture [Unknown]
  - Intramedullary rod insertion [Unknown]
  - Femur fracture [Unknown]
  - Femur fracture [Recovered/Resolved]
  - Intramedullary rod insertion [Unknown]
  - Rhabdomyolysis [Unknown]
  - Cholecystectomy [Unknown]
  - Surgery [Unknown]
  - Renal failure acute [Unknown]
  - Fall [Unknown]
  - Contusion [Unknown]
  - Ligament sprain [Unknown]
  - Ligament sprain [Unknown]
  - Transfusion reaction [Unknown]
  - Diabetes mellitus [Unknown]
  - Hypercholesterolaemia [Unknown]
  - Osteoarthritis [Not Recovered/Not Resolved]
  - Hypertension [Unknown]
  - Gastrointestinal haemorrhage [Unknown]
  - Vocal cord polyp [Unknown]
  - Ankle fracture [Unknown]
  - Knee operation [Unknown]
  - Hysterectomy [Unknown]
  - Temperature intolerance [Unknown]
  - Intermittent claudication [Unknown]
  - Myoglobin blood increased [Unknown]
  - Dehydration [Unknown]
  - Fall [Unknown]
  - Osteoarthritis [Unknown]
  - Foot fracture [Recovering/Resolving]
  - Osteoarthritis [Unknown]
  - Rotator cuff syndrome [Unknown]
  - Osteoarthritis [Unknown]
  - Bursitis [Unknown]
  - Scapula fracture [Unknown]
  - Nervousness [Unknown]
  - Hypokalaemia [Unknown]
  - Hypertensive nephropathy [Not Recovered/Not Resolved]
  - Gout [Unknown]
  - Anaemia [Unknown]
  - Tachycardia [Unknown]
  - Intercapillary glomerulosclerosis [Unknown]
  - Hand fracture [Recovering/Resolving]
  - Osteoarthritis [Unknown]
  - Osteopenia [Unknown]
  - Back injury [Unknown]
  - Spinal osteoarthritis [Unknown]
  - Spinal compression fracture [Unknown]
  - Back pain [Unknown]
  - Gastrooesophageal reflux disease [Unknown]
  - Constipation [Unknown]
  - Pain in extremity [Unknown]
